FAERS Safety Report 6635692-X (Version None)
Quarter: 2010Q1

REPORT INFORMATION
  Report Type: 
  Country: None (occurrence: None)
  Receive Date: 20100312
  Receipt Date: 20100312
  Transmission Date: 20100710
  Serious: No
  Sender: FDA-Public Use
  Company Number: None

PATIENT
  Age: 73 Year
  Sex: Male
  Weight: 92.5 kg

DRUGS (1)
  1. LIDOCAINE [Suspect]
     Indication: CATARACT OPERATION
     Dosage: 3.5 ML ONCE OTHER
     Route: 050
     Dates: start: 20100309, end: 20100309

REACTIONS (2)
  - PROCEDURAL PAIN [None]
  - THERAPEUTIC RESPONSE DECREASED [None]
